FAERS Safety Report 8934183 (Version 1)
Quarter: 2012Q4

REPORT INFORMATION
  Report Type: 
  Country: US (occurrence: US)
  Receive Date: 20121129
  Receipt Date: 20121129
  Transmission Date: 20130627
  Serious: No
  Sender: FDA-Public Use
  Company Number: US-GLAXOSMITHKLINE-A0990988A

PATIENT
  Sex: Female

DRUGS (15)
  1. WELLBUTRIN SR [Suspect]
     Indication: DEPRESSION
     Dosage: 150MG Twice per day
     Route: 048
  2. PEGASYS [Concomitant]
  3. COPEGUS [Concomitant]
  4. ACIPHEX [Concomitant]
  5. PROVENTIL [Concomitant]
  6. VITAMIN B12 [Concomitant]
  7. IBUPROFEN [Concomitant]
  8. HYDROXYZINE [Concomitant]
  9. BUSPAR [Concomitant]
  10. RELPAX [Concomitant]
  11. PROMETHAZINE [Concomitant]
  12. TYLENOL [Concomitant]
  13. TRAZODONE [Concomitant]
  14. TOPOMAX [Concomitant]
  15. ANTIBIOTICS [Concomitant]

REACTIONS (3)
  - Drug administration error [Recovering/Resolving]
  - Therapeutic response unexpected [Unknown]
  - No adverse event [Unknown]
